FAERS Safety Report 6583131-X (Version None)
Quarter: 2010Q1

REPORT INFORMATION
  Report Type: 
  Country: None (occurrence: None)
  Receive Date: 20100216
  Receipt Date: 20100208
  Transmission Date: 20100710
  Serious: Yes (Other)
  Sender: FDA-Public Use
  Company Number: JP-MERCK-1002USA01731

PATIENT
  Age: 38 Year
  Sex: Male

DRUGS (4)
  1. JANUVIA [Suspect]
     Indication: DIABETES MELLITUS
     Route: 048
     Dates: start: 20100101
  2. AMARYL [Concomitant]
     Indication: DIABETES MELLITUS
     Route: 048
  3. AMARYL [Concomitant]
     Route: 048
  4. ACTOS [Concomitant]
     Indication: DIABETES MELLITUS
     Route: 048
     Dates: start: 20091211, end: 20100120

REACTIONS (1)
  - WEIGHT DECREASED [None]
